FAERS Safety Report 6786526-4 (Version None)
Quarter: 2010Q2

REPORT INFORMATION
  Report Type: 
  Country: None (occurrence: None)
  Receive Date: 20100623
  Receipt Date: 20100618
  Transmission Date: 20101027
  Serious: Yes (Hospitalization)
  Sender: FDA-Public Use
  Company Number: US-GILEAD-2010-0029974

PATIENT
  Sex: Female

DRUGS (20)
  1. LETAIRIS [Suspect]
     Indication: PULMONARY ARTERIAL HYPERTENSION
     Route: 048
     Dates: start: 20100518
  2. PLAVIX [Concomitant]
  3. ASPIRIN [Concomitant]
  4. SPIRONOLACTONE [Concomitant]
  5. LASIX [Concomitant]
  6. CARVEDILOL [Concomitant]
  7. MICARDIS [Concomitant]
  8. NITROLINGUAL [Concomitant]
  9. ZETIA [Concomitant]
  10. ALBUTEROL [Concomitant]
  11. ADVAIR DISKUS 100/50 [Concomitant]
  12. PROAIR HFA [Concomitant]
  13. MUCINEX [Concomitant]
  14. ATACAND [Concomitant]
  15. ZOLOFT [Concomitant]
  16. NEXIUM [Concomitant]
  17. DETROL LA [Concomitant]
  18. REFRESH [Concomitant]
  19. MULTI-VITAMIN [Concomitant]
  20. CALCIUM +D [Concomitant]

REACTIONS (4)
  - CARDIAC FAILURE CONGESTIVE [None]
  - OEDEMA PERIPHERAL [None]
  - PNEUMONIA [None]
  - WHITE BLOOD CELL COUNT DECREASED [None]
